FAERS Safety Report 13458577 (Version 2)
Quarter: 2017Q2

REPORT INFORMATION
  Report Type: Spontaneous
  Country: DE (occurrence: DE)
  Receive Date: 20170419
  Receipt Date: 20170421
  Transmission Date: 20170830
  Serious: Yes (Other)
  Sender: FDA-Public Use
  Company Number: DE-009507513-1704DEU006975

PATIENT
  Sex: Female

DRUGS (1)
  1. OVESTIN 0,5 MG OVULA [Suspect]
     Active Substance: ESTRIOL
     Indication: PRODUCT USED FOR UNKNOWN INDICATION
     Dosage: 1 DOSAGE FORMS (1 DOSAGE FORMS , 1 IN 1 D)
     Route: 067

REACTIONS (1)
  - Gastrointestinal inflammation [Unknown]
